FAERS Safety Report 21337048 (Version 1)
Quarter: 2022Q3

REPORT INFORMATION
  Report Type: Spontaneous
  Country: US (occurrence: US)
  Receive Date: 20220915
  Receipt Date: 20220915
  Transmission Date: 20221026
  Serious: No
  Sender: FDA-Public Use
  Company Number: US-GILEAD-2022-0597637

PATIENT
  Age: 63 Year
  Sex: Female

DRUGS (1)
  1. HARVONI [Suspect]
     Active Substance: LEDIPASVIR\SOFOSBUVIR
     Indication: Product used for unknown indication
     Route: 065

REACTIONS (3)
  - Dysphagia [Unknown]
  - Product use complaint [Unknown]
  - Product dose omission issue [Unknown]
